FAERS Safety Report 23118678 (Version 2)
Quarter: 2023Q4

REPORT INFORMATION
  Report Type: Report from Study
  Country: FR (occurrence: FR)
  Receive Date: 20231028
  Receipt Date: 20231117
  Transmission Date: 20240109
  Serious: Yes (Hospitalization)
  Sender: FDA-Public Use
  Company Number: FR-JNJFOC-20231050166

PATIENT
  Age: 64 Year
  Sex: Male
  Weight: 103 kg

DRUGS (13)
  1. ESKETAMINE [Suspect]
     Active Substance: ESKETAMINE
     Indication: Depression
     Dosage: 56 MG, 1 DOSE
     Dates: start: 20230627, end: 20230627
  2. ESKETAMINE [Suspect]
     Active Substance: ESKETAMINE
     Dosage: 84 MG, 7 DOSES
     Dates: start: 20230629, end: 20230720
  3. ESKETAMINE [Suspect]
     Active Substance: ESKETAMINE
     Dosage: 84 MG, 12 DOSES
     Dates: start: 20230727, end: 20231012
  4. FLUOXETINE [Concomitant]
     Active Substance: FLUOXETINE HYDROCHLORIDE
     Dates: start: 20230315, end: 20230328
  5. FLUOXETINE [Concomitant]
     Active Substance: FLUOXETINE HYDROCHLORIDE
     Dates: start: 20230329, end: 20230524
  6. FLUOXETINE [Concomitant]
     Active Substance: FLUOXETINE HYDROCHLORIDE
     Dates: start: 20230525
  7. LITHIUM [Concomitant]
     Active Substance: LITHIUM
     Dates: start: 20230721, end: 20230928
  8. LITHIUM [Concomitant]
     Active Substance: LITHIUM
     Dates: start: 20230929
  9. HYDROXYZINE [Concomitant]
     Active Substance: HYDROXYZINE HYDROCHLORIDE
     Indication: Anxiety
     Dates: start: 20230626
  10. PROPRANOLOL [Concomitant]
     Active Substance: PROPRANOLOL HYDROCHLORIDE
     Indication: Anxiety
     Dates: start: 20230606
  11. PRAZEPAM [Concomitant]
     Active Substance: PRAZEPAM
     Indication: Anxiety
     Dates: start: 20230606, end: 20230625
  12. PRAZEPAM [Concomitant]
     Active Substance: PRAZEPAM
     Dates: start: 20230626
  13. CLORAZEPATE DIPOTASSIUM [Concomitant]
     Active Substance: CLORAZEPATE DIPOTASSIUM
     Indication: Anxiety
     Dates: start: 20230814

REACTIONS (1)
  - Anxiety [Recovered/Resolved]

NARRATIVE: CASE EVENT DATE: 20231013
